FAERS Safety Report 4457694-4 (Version None)
Quarter: 2004Q3

REPORT INFORMATION
  Report Type: 
  Country: None (occurrence: None)
  Receive Date: 20040831
  Receipt Date: 20040715
  Transmission Date: 20050211
  Serious: No
  Sender: FDA-Public Use
  Company Number: MPS1-10263

PATIENT
  Age: 39 Year
  Sex: Female
  Weight: 60 kg

DRUGS (6)
  1. ALDURAZYME [Suspect]
     Indication: MUCOPOLYSACCHARIDOSIS I
     Dosage: 35 MG QWK IV
     Route: 042
     Dates: start: 20030617
  2. ZYRTEC [Concomitant]
  3. DIAMOX [Concomitant]
  4. COUMADIN [Concomitant]
  5. ACETAZOLAMIDE [Concomitant]
  6. NORETHINDRONE ACETATE [Concomitant]

REACTIONS (1)
  - NAUSEA [None]
